FAERS Safety Report 23044704 (Version 2)
Quarter: 2024Q4

REPORT INFORMATION
  Report Type: Spontaneous
  Country: US (occurrence: US)
  Receive Date: 20231009
  Receipt Date: 20241212
  Transmission Date: 20250115
  Serious: No
  Sender: SANOFI AVENTIS
  Company Number: US-SA-SAC20231003000591

PATIENT
  Age: 9 Year
  Sex: Female

DRUGS (2)
  1. DUPIXENT [Suspect]
     Active Substance: DUPILUMAB
     Indication: Dermatitis atopic
     Dosage: 300 MG, Q4W
     Route: 058
     Dates: start: 202306
  2. DUPIXENT [Suspect]
     Active Substance: DUPILUMAB
     Dosage: 200 MG, QOW
     Route: 058

REACTIONS (6)
  - Pruritus [Unknown]
  - Eye swelling [Recovered/Resolved]
  - Swelling face [Unknown]
  - Dermatitis atopic [Unknown]
  - Hypersensitivity [Unknown]
  - Eye pruritus [Recovered/Resolved]

NARRATIVE: CASE EVENT DATE: 20241101
